FAERS Safety Report 7451094-0 (Version None)
Quarter: 2011Q2

REPORT INFORMATION
  Report Type: 
  Country: None (occurrence: None)
  Receive Date: 20110429
  Receipt Date: 20110429
  Transmission Date: 20111010
  Serious: Yes (Hospitalization)
  Sender: FDA-Public Use
  Company Number: None

PATIENT
  Age: 60 Year
  Sex: Female
  Weight: 106.8 kg

DRUGS (5)
  1. NEXIUM [Concomitant]
  2. AUGMENTIN [Concomitant]
  3. SOTALOL HCL [Concomitant]
  4. MOTRIN [Suspect]
     Indication: ARTHRALGIA
     Dosage: PO
     Route: 048
  5. CLONAZEPAM [Concomitant]

REACTIONS (3)
  - ANAEMIA [None]
  - DUODENAL ULCER [None]
  - GASTROINTESTINAL HAEMORRHAGE [None]
